FAERS Safety Report 22231763 (Version 1)
Quarter: 2023Q2

REPORT INFORMATION
  Report Type: Spontaneous
  Country: US (occurrence: None)
  Receive Date: 20230420
  Receipt Date: 20230420
  Transmission Date: 20230721
  Serious: No
  Sender: FDA-Public Use
  Company Number: US-ROCHE-3093590

PATIENT
  Sex: Male

DRUGS (1)
  1. ESBRIET [Suspect]
     Active Substance: PIRFENIDONE
     Indication: Idiopathic pulmonary fibrosis
     Dosage: THREE TIMES DAILY BY MOUTH
     Route: 048
     Dates: start: 20220418

REACTIONS (8)
  - Incorrect dose administered [Unknown]
  - Headache [Unknown]
  - Arthralgia [Unknown]
  - Asthenia [Unknown]
  - Confusional state [Unknown]
  - Nausea [Unknown]
  - Disorientation [Unknown]
  - Diarrhoea [Recovered/Resolved]
